FAERS Safety Report 16095437 (Version 1)
Quarter: 2019Q1

REPORT INFORMATION
  Report Type: Spontaneous
  Country: ZA (occurrence: ZA)
  Receive Date: 20190320
  Receipt Date: 20190320
  Transmission Date: 20190418
  Serious: Yes (Hospitalization)
  Sender: FDA-Public Use
  Company Number: ZA-NOVOPROD-651668

PATIENT
  Age: 57 Year
  Sex: Female

DRUGS (10)
  1. PLENISH-K [Concomitant]
     Active Substance: POTASSIUM CHLORIDE
     Dosage: 600 MG
     Route: 065
  2. ESTROFEM [Suspect]
     Active Substance: ESTRADIOL HEMIHYDRATE
     Indication: HORMONE REPLACEMENT THERAPY
     Dosage: 1 MG
     Route: 048
  3. CONCOR [Concomitant]
     Active Substance: BISOPROLOL FUMARATE
     Dosage: 5 MG
     Route: 065
  4. URBANOL [Concomitant]
     Active Substance: CLOBAZAM
     Dosage: 5 MG
     Route: 065
  5. PANTOR [Concomitant]
     Active Substance: PANTOPRAZOLE SODIUM
     Dosage: 40 MG
     Route: 065
  6. ECOTRIN [Concomitant]
     Active Substance: ASPIRIN
     Dosage: 81 MG
     Route: 065
  7. ADCO-RETIC [Concomitant]
     Active Substance: AMILORIDE HYDROCHLORIDE\HYDROCHLOROTHIAZIDE
     Dosage: 5/50 MG
     Route: 065
  8. RAMIWIN [Concomitant]
     Active Substance: RAMIPRIL
     Dosage: 5 MG
     Route: 065
  9. ASPAVOR [Concomitant]
     Active Substance: ATORVASTATIN
     Dosage: 10 MG
     Route: 065
  10. TRITACE [Concomitant]
     Active Substance: RAMIPRIL
     Dosage: 5 MG
     Route: 065

REACTIONS (1)
  - Goitre [Unknown]
